FAERS Safety Report 17835368 (Version 1)
Quarter: 2020Q2

REPORT INFORMATION
  Report Type: Report from Study
  Country: US (occurrence: US)
  Receive Date: 20200528
  Receipt Date: 20200528
  Transmission Date: 20200714
  Serious: Yes (Other)
  Sender: FDA-Public Use
  Company Number: US-ACCORD-183159

PATIENT

DRUGS (3)
  1. FENTANYL. [Concomitant]
     Active Substance: FENTANYL
     Indication: SEDATIVE THERAPY
  2. MITOMYCIN. [Suspect]
     Active Substance: MITOMYCIN
     Indication: TRANSCATHETER ARTERIAL CHEMOEMBOLISATION
  3. MIDAZOLAM. [Concomitant]
     Active Substance: MIDAZOLAM
     Indication: SEDATIVE THERAPY

REACTIONS (2)
  - Off label use [Unknown]
  - Seizure [Unknown]
